FAERS Safety Report 5501310-7 (Version None)
Quarter: 2007Q4

REPORT INFORMATION
  Report Type: 
  Country: None (occurrence: None)
  Receive Date: 20071026
  Receipt Date: 20071019
  Transmission Date: 20080405
  Serious: Yes (Death, Hospitalization)
  Sender: FDA-Public Use
  Company Number: US021127

PATIENT
  Age: 44 Year
  Sex: Female

DRUGS (5)
  1. FENTORA [Suspect]
     Indication: MIGRAINE
     Dosage: QD BUCCAL
     Route: 002
     Dates: start: 20070401
  2. BUPROPION HCL [Concomitant]
  3. LIDOCAINE [Concomitant]
  4. DULOXETINE [Concomitant]
  5. ESCITALOPRAM OXALATE [Concomitant]

REACTIONS (10)
  - ANOXIC ENCEPHALOPATHY [None]
  - BARBITURATES POSITIVE [None]
  - CYANOSIS [None]
  - DISSEMINATED INTRAVASCULAR COAGULATION [None]
  - DRUG SCREEN POSITIVE [None]
  - HEPATOTOXICITY [None]
  - LOSS OF CONSCIOUSNESS [None]
  - MULTI-ORGAN FAILURE [None]
  - RENAL FAILURE ACUTE [None]
  - SELF-MEDICATION [None]
